FAERS Safety Report 6094004-3 (Version None)
Quarter: 2009Q1

REPORT INFORMATION
  Report Type: 
  Country: None (occurrence: None)
  Receive Date: 20090226
  Receipt Date: 20090225
  Transmission Date: 20090719
  Serious: Yes (Death)
  Sender: FDA-Public Use
  Company Number: B0561369A

PATIENT
  Age: 65 Year
  Sex: Male

DRUGS (4)
  1. WELLBUTRIN XR [Suspect]
     Indication: DEPRESSION
     Dosage: 300MG PER DAY
     Route: 048
     Dates: start: 20090209
  2. RISPERDAL [Concomitant]
     Indication: AGITATION
     Dosage: 1MG PER DAY
     Dates: start: 20090110
  3. CISATRACURIUM BESILATE [Concomitant]
     Indication: SLEEP DISORDER
     Dosage: 30MG PER DAY
  4. ABILIFY [Concomitant]
     Indication: AGITATION

REACTIONS (1)
  - COMPLETED SUICIDE [None]
